FAERS Safety Report 6676215-9 (Version None)
Quarter: 2010Q2

REPORT INFORMATION
  Report Type: 
  Country: None (occurrence: None)
  Receive Date: 20100412
  Receipt Date: 20100402
  Transmission Date: 20101027
  Serious: Yes (Other)
  Sender: FDA-Public Use
  Company Number: JP-JNJFOC-20100401897

PATIENT
  Age: 70 Year
  Sex: Female

DRUGS (1)
  1. CRAVIT [Suspect]
     Indication: DRUG USE FOR UNKNOWN INDICATION
     Route: 065

REACTIONS (3)
  - OCULOMUCOCUTANEOUS SYNDROME [None]
  - RHABDOMYOLYSIS [None]
  - STEVENS-JOHNSON SYNDROME [None]
